FAERS Safety Report 20219892 (Version 1)
Quarter: 2021Q4

REPORT INFORMATION
  Report Type: Other
  Country: US (occurrence: US)
  Receive Date: 20211222
  Receipt Date: 20211222
  Transmission Date: 20220304
  Serious: No
  Sender: FDA-Public Use
  Company Number: US-Covis Pharma GmbH-2021COV23526

PATIENT
  Age: 29 Year
  Sex: Female
  Weight: 95.794 kg

DRUGS (1)
  1. MAKENA [Suspect]
     Active Substance: HYDROXYPROGESTERONE CAPROATE
     Indication: Premature delivery
     Route: 058
     Dates: start: 20210629

REACTIONS (1)
  - Cervix cerclage procedure [Unknown]

NARRATIVE: CASE EVENT DATE: 20210727
